FAERS Safety Report 19449070 (Version 2)
Quarter: 2021Q3

REPORT INFORMATION
  Report Type: Spontaneous
  Country: DE (occurrence: DE)
  Receive Date: 20210622
  Receipt Date: 20210708
  Transmission Date: 20211014
  Serious: Yes (Life-Threatening, Other)
  Sender: FDA-Public Use
  Company Number: DE-MYLANLABS-2021M1035609

PATIENT
  Age: 59 Year
  Sex: Female

DRUGS (30)
  1. PREDNISOLONE. [Suspect]
     Active Substance: PREDNISOLONE
     Dosage: 2.5 MILLIGRAM, CYCLE, CYCLE A, DAY 1 AND 2
  2. DEXAMETHASONE. [Suspect]
     Active Substance: DEXAMETHASONE
     Dosage: 10 MILLIGRAM/SQ. METER, CYCLE, BAS CYCLE B, DAY 1 AND 2
     Route: 048
  3. CYTARABINE. [Suspect]
     Active Substance: CYTARABINE
     Indication: CENTRAL NERVOUS SYSTEM LYMPHOMA
     Dosage: 30 MG INTRAVENTRICULAR ON DAY 7 IN CYCLE C
     Route: 042
  4. HOLOXAN [Suspect]
     Active Substance: IFOSFAMIDE
     Indication: CENTRAL NERVOUS SYSTEM LYMPHOMA
     Dosage: 800 MILLIGRAM/SQ. METER, CYCLE, CYCLE A, DAY 2
     Route: 042
  5. VINCRISTINE SULFATE. [Suspect]
     Active Substance: VINCRISTINE SULFATE
     Indication: CENTRAL NERVOUS SYSTEM LYMPHOMA
     Dosage: 2 MILLIGRAM, CYCLE, CYCLE A, DAY 1
     Route: 042
  6. VINDESINE [Suspect]
     Active Substance: VINDESINE
     Indication: CENTRAL NERVOUS SYSTEM LYMPHOMA
     Dosage: 5 MG ON DAY 1 IN CYCLE C
     Route: 042
  7. DEXAMETHASONE. [Suspect]
     Active Substance: DEXAMETHASONE
     Indication: CENTRAL NERVOUS SYSTEM LYMPHOMA
     Dosage: 10 MG/M2 ON DAY 1?5 IN CYCLE A AND B
     Route: 048
  8. CYTARABINE. [Suspect]
     Active Substance: CYTARABINE
     Dosage: 30 MG, INTRAVENTRICULAR ON DAY 5 IN CYCLE A
  9. CYTARABINE. [Suspect]
     Active Substance: CYTARABINE
     Dosage: 30 MG INTRAVENTRICULAR ON DAY 5 IN CYCLE B
  10. ARA?C [Suspect]
     Active Substance: CYTARABINE
     Indication: CENTRAL NERVOUS SYSTEM LYMPHOMA
     Dosage: 30 MILLIGRAM, CYCLE, CYCLE C, DAY 1 AND 2, OVER 3 HOURS PER INFUSION
     Route: 042
  11. ONDANSETRON [Concomitant]
     Active Substance: ONDANSETRON
     Indication: PROPHYLAXIS OF NAUSEA AND VOMITING
     Dosage: UNK
  12. PREDNISOLONE. [Suspect]
     Active Substance: PREDNISOLONE
     Dosage: 2.5 MILLIGRAM, CYCLE, CYCLE B, DAY 1 AND 2
  13. METHOTREXATE. [Suspect]
     Active Substance: METHOTREXATE
     Dosage: CYCLE B, DAY 1, 0.5 G/M2 BSA OVER 30 MIN AND 4.5 G/M2 BSA OVER 23.5 HOURS PER INFUSION
     Route: 042
  14. MESNA. [Concomitant]
     Active Substance: MESNA
     Indication: PROPHYLAXIS
     Dosage: UNK
  15. PREDNISOLONE. [Suspect]
     Active Substance: PREDNISOLONE
     Indication: CENTRAL NERVOUS SYSTEM LYMPHOMA
     Dosage: 2.5 MG INTRAVENTRICULAR ON DAY 1?4 IN CYCLE A AND B, ON DAY 3?6 IN CYCLE
  16. DEXAMETHASONE. [Suspect]
     Active Substance: DEXAMETHASONE
     Dosage: 10 MILLIGRAM/SQ. METER, CYCLE, BAS CYCLE A, DAY 1 AND 2
     Route: 048
  17. METHOTREXATE. [Suspect]
     Active Substance: METHOTREXATE
     Dosage: CYCLE A, DAY 1
     Route: 042
  18. METHOTREXATE. [Suspect]
     Active Substance: METHOTREXATE
     Dosage: 3 MILLIGRAM, CYCLE,CYCLE A, DAY 1 AND 2
     Route: 050
  19. METHOTREXATE. [Suspect]
     Active Substance: METHOTREXATE
     Dosage: 3.5 G/M2 ON DAY 1 IN CYCLE B1, A2 AND B2
     Route: 042
  20. METHOTREXATE. [Suspect]
     Active Substance: METHOTREXATE
     Dosage: 5G/M2 ON DAY 1 IN CYCLE A1
     Route: 042
  21. METHOTREXATE. [Suspect]
     Active Substance: METHOTREXATE
     Dosage: CYCLE B, DAY 1
     Route: 042
  22. DEXAMETHASONE. [Suspect]
     Active Substance: DEXAMETHASONE
     Dosage: 10 MILLIGRAM/SQ. METER, CYCLE, BAS CYCLE C, DAY 1 AND 2
     Route: 048
  23. CYTARABINE. [Suspect]
     Active Substance: CYTARABINE
     Dosage: 3 G/M2 OVER 3 HR VIA INFUSION ON DAY 1 AND 2 IN CYCLE C
  24. VINCRISTINE SULFATE. [Suspect]
     Active Substance: VINCRISTINE SULFATE
     Dosage: 2 MILLIGRAM, CYCLE, CYCLE B, DAY 1
     Route: 042
  25. DEXAMETHASONE. [Suspect]
     Active Substance: DEXAMETHASONE
     Dosage: 20 MG/M2 ON DAY 1?5 IN CYCLE C
     Route: 048
  26. METHOTREXATE. [Suspect]
     Active Substance: METHOTREXATE
     Indication: CENTRAL NERVOUS SYSTEM LYMPHOMA
     Dosage: 3 MG INTRAVENTRICULAR ON DAY 1?4 IN CYCLE A AND B,
  27. METHOTREXATE. [Suspect]
     Active Substance: METHOTREXATE
     Dosage: 3 MILLIGRAM, CYCLE,CYCLE B, DAY 1 AND 2
     Route: 050
  28. ENDOXAN                            /00021102/ [Suspect]
     Active Substance: CYCLOPHOSPHAMIDE
     Indication: CENTRAL NERVOUS SYSTEM LYMPHOMA
     Dosage: 200 MILLIGRAM/SQ. METER, CYCLE , CYCLE B, DAY 2
     Route: 042
  29. IFOSFAMIDE. [Suspect]
     Active Substance: IFOSFAMIDE
     Indication: CENTRAL NERVOUS SYSTEM LYMPHOMA
     Dosage: 800 MG/M2, OVER 1 HR VIA INFUSION, ON DAY 2?5 IN CYCLE A1
     Route: 042
  30. TROPISETRON [Concomitant]
     Active Substance: TROPISETRON
     Indication: PROPHYLAXIS OF NAUSEA AND VOMITING
     Dosage: UNK

REACTIONS (4)
  - Thrombocytopenia [Unknown]
  - Alopecia areata [Unknown]
  - Duodenal ulcer perforation [Unknown]
  - Leukopenia [Unknown]
